FAERS Safety Report 9390296 (Version 3)
Quarter: 2013Q3

REPORT INFORMATION
  Report Type: Spontaneous
  Country: JP (occurrence: JP)
  Receive Date: 20130709
  Receipt Date: 20130725
  Transmission Date: 20140515
  Serious: Yes (Other)
  Sender: FDA-Public Use
  Company Number: JP-RANBAXY-2013RR-71003

PATIENT
  Age: 60 Year
  Sex: Male

DRUGS (6)
  1. CLARITHROMYCIN [Suspect]
     Indication: B-CELL LYMPHOMA RECURRENT
     Dosage: 400 MG, BID
     Route: 048
  2. CYCLOPHOSPHAMIDE [Suspect]
     Indication: LYMPHOMA
     Dosage: 50 MG, QD
     Route: 048
  3. PREDNISOLONE [Suspect]
     Indication: B-CELL LYMPHOMA RECURRENT
     Dosage: 10 MG, TID
     Route: 048
  4. PREDNISOLONE [Suspect]
     Indication: B-CELL LYMPHOMA RECURRENT
     Dosage: 10 MG, BID
     Route: 048
  5. PREDNISOLONE [Suspect]
     Indication: B-CELL LYMPHOMA RECURRENT
     Dosage: 5 MG, TID
     Route: 048
  6. PREDNISOLONE [Suspect]
     Indication: B-CELL LYMPHOMA RECURRENT
     Dosage: 5 MG, BID
     Route: 048

REACTIONS (2)
  - Pneumonia [Recovered/Resolved]
  - Thrombocytopenia [Recovered/Resolved]
